FAERS Safety Report 25007795 (Version 2)
Quarter: 2025Q2

REPORT INFORMATION
  Report Type: Spontaneous
  Country: AU (occurrence: AU)
  Receive Date: 20250225
  Receipt Date: 20250417
  Transmission Date: 20250716
  Serious: Yes (Hospitalization)
  Sender: AMGEN
  Company Number: AU-AMGEN-AUSSP2025033504

PATIENT
  Age: 70 Year
  Sex: Male

DRUGS (7)
  1. REPATHA [Suspect]
     Active Substance: EVOLOCUMAB
     Indication: Blood cholesterol abnormal
     Dosage: 140 MILLIGRAM, Q2WK
     Route: 058
     Dates: start: 202412
  2. REPATHA [Suspect]
     Active Substance: EVOLOCUMAB
     Indication: Pain in extremity
  3. REPATHA [Suspect]
     Active Substance: EVOLOCUMAB
     Indication: Venous occlusion
  4. WARFARIN [Concomitant]
     Active Substance: WARFARIN
  5. Minaxolona [Concomitant]
     Indication: Heart rate abnormal
  6. LYRICA [Concomitant]
     Active Substance: PREGABALIN
     Indication: Neuralgia
     Dosage: 75 MILLIGRAM, QD
  7. ASPIRIN [Concomitant]
     Active Substance: ASPIRIN

REACTIONS (5)
  - Pseudostroke [Unknown]
  - Tremor [Unknown]
  - Nodule [Unknown]
  - Contusion [Unknown]
  - Erythema [Unknown]

NARRATIVE: CASE EVENT DATE: 20250101
